FAERS Safety Report 22112989 (Version 4)
Quarter: 2023Q2

REPORT INFORMATION
  Report Type: Other
  Country: GB (occurrence: GB)
  Receive Date: 20230320
  Receipt Date: 20230630
  Transmission Date: 20230721
  Serious: Yes (Hospitalization, Other)
  Sender: FDA-Public Use
  Company Number: None

PATIENT
  Age: 12 Year
  Sex: Female

DRUGS (11)
  1. IBUPROFEN [Suspect]
     Active Substance: IBUPROFEN
     Indication: Product used for unknown indication
     Dosage: 400 MILLIGRAM, SOLUTION FOR INFUSION
     Route: 042
  2. IBUPROFEN [Suspect]
     Active Substance: IBUPROFEN
     Dosage: 200 MILLIGRAM, SOLUTION FOR INFUSION
     Route: 042
  3. IBUPROFEN [Suspect]
     Active Substance: IBUPROFEN
     Dosage: 600 MILLIGRAM, SOLUTION FOR INFUSION
     Route: 042
  4. IBUPROFEN [Suspect]
     Active Substance: IBUPROFEN
     Dosage: 400 MILLIGRAM, SOLUTION FOR INFUSION
     Route: 042
  5. IBUPROFEN [Suspect]
     Active Substance: IBUPROFEN
     Dosage: 400 MILLIGRAM, ORAL SOLUTION
     Route: 048
  6. IBUPROFEN [Suspect]
     Active Substance: IBUPROFEN
     Dosage: UNK
     Route: 065
  7. IBUPROFEN [Suspect]
     Active Substance: IBUPROFEN
     Dosage: 600 MILLIGRAM, ORAL SOLUTION
     Route: 048
  8. IBUPROFEN [Suspect]
     Active Substance: IBUPROFEN
     Dosage: UNK
     Route: 065
  9. IBUPROFEN [Suspect]
     Active Substance: IBUPROFEN
     Dosage: 200 MILLIGRAM, ORAL SOLUTION
     Route: 048
  10. COMIRNATY [Suspect]
     Active Substance: TOZINAMERAN
     Indication: COVID-19 immunisation
     Dosage: (DOSE 1) (SOLUTION FOR INJECTION)
     Route: 065
     Dates: start: 20211026, end: 20211026
  11. COMIRNATY [Suspect]
     Active Substance: TOZINAMERAN
     Dosage: (DOSE 2 SINGLE) (SOLUTION FOR INJECTION)
     Route: 065
     Dates: start: 20211026, end: 20211026

REACTIONS (10)
  - Chest pain [Unknown]
  - Chest pain [Unknown]
  - Pericarditis [Unknown]
  - Myocarditis [Unknown]
  - Tachycardia [Unknown]
  - Palpitations [Unknown]
  - Palpitations [Unknown]
  - Dyspnoea [Unknown]
  - Inappropriate schedule of product administration [Unknown]
  - Off label use [Unknown]

NARRATIVE: CASE EVENT DATE: 20211026
